FAERS Safety Report 14435299 (Version 1)
Quarter: 2018Q1

REPORT INFORMATION
  Report Type: Spontaneous
  Country: US (occurrence: US)
  Receive Date: 20180124
  Receipt Date: 20180124
  Transmission Date: 20180509
  Serious: No
  Sender: FDA-Public Use
  Company Number: None

PATIENT
  Age: 19 Year
  Sex: Female
  Weight: 75.75 kg

DRUGS (1)
  1. DEXMETHYLPHENIDATE 2.5MG [Suspect]
     Active Substance: DEXMETHYLPHENIDATE HYDROCHLORIDE
     Indication: ATTENTION DEFICIT/HYPERACTIVITY DISORDER
     Dosage: ONE TO TWO TABS 7X/DAY P.O.
     Route: 048
     Dates: start: 20100812, end: 20100912

REACTIONS (4)
  - Anxiety [None]
  - Tachyphrenia [None]
  - Product substitution issue [None]
  - Irritability [None]

NARRATIVE: CASE EVENT DATE: 20100812
